FAERS Safety Report 5846437-5 (Version None)
Quarter: 2008Q3

REPORT INFORMATION
  Report Type: 
  Country: None (occurrence: None)
  Receive Date: 20080815
  Receipt Date: 20080802
  Transmission Date: 20090109
  Serious: Yes (Death, Other)
  Sender: FDA-Public Use
  Company Number: US-BAYER-200823917GPV

PATIENT
  Age: 7 Year
  Sex: Female

DRUGS (2)
  1. FLUDARABINE PHOSPHATE [Suspect]
     Indication: ACUTE LYMPHOCYTIC LEUKAEMIA
     Route: 065
  2. FLUDARABINE PHOSPHATE [Suspect]
     Route: 065

REACTIONS (5)
  - BLINDNESS CORTICAL [None]
  - DIPLOPIA [None]
  - DYSARTHRIA [None]
  - ENCEPHALOPATHY [None]
  - MOTOR DYSFUNCTION [None]
